FAERS Safety Report 10094175 (Version 1)
Quarter: 2014Q2

REPORT INFORMATION
  Report Type: Spontaneous
  Country: MX (occurrence: MX)
  Receive Date: 20140422
  Receipt Date: 20140422
  Transmission Date: 20141212
  Serious: Yes (Hospitalization, Other)
  Sender: FDA-Public Use
  Company Number: MX-ROCHE-1384276

PATIENT
  Age: 4 Year
  Sex: Female

DRUGS (12)
  1. TRETINOIN [Suspect]
     Indication: ACUTE PROMYELOCYTIC LEUKAEMIA
     Route: 065
  2. TRETINOIN [Suspect]
     Route: 065
  3. TRETINOIN [Suspect]
     Route: 065
  4. DAUNORUBICIN [Suspect]
     Indication: ACUTE PROMYELOCYTIC LEUKAEMIA
     Route: 065
  5. DAUNORUBICIN [Suspect]
     Route: 065
  6. DAUNORUBICIN [Suspect]
     Route: 065
  7. ARA-C [Suspect]
     Indication: ACUTE PROMYELOCYTIC LEUKAEMIA
     Route: 065
  8. ARA-C [Suspect]
     Route: 065
  9. MITOXANTRONE [Suspect]
     Indication: ACUTE PROMYELOCYTIC LEUKAEMIA
     Route: 065
  10. MERCAPTOPURINE [Suspect]
     Indication: ACUTE PROMYELOCYTIC LEUKAEMIA
     Route: 065
  11. METHOTREXATE [Suspect]
     Indication: ACUTE PROMYELOCYTIC LEUKAEMIA
     Route: 065
  12. DEXAMETHASONE [Concomitant]
     Route: 042

REACTIONS (6)
  - Coagulopathy [Unknown]
  - Retinoic acid syndrome [Unknown]
  - Headache [Unknown]
  - Haemorrhage [Unknown]
  - Febrile neutropenia [Unknown]
  - Bone pain [Unknown]
